FAERS Safety Report 21604655 (Version 2)
Quarter: 2022Q4

REPORT INFORMATION
  Report Type: Spontaneous
  Country: JP (occurrence: JP)
  Receive Date: 20221116
  Receipt Date: 20221201
  Transmission Date: 20230112
  Serious: Yes (Other)
  Sender: FDA-Public Use
  Company Number: JP-TEVA-2022-JP-2826203

PATIENT
  Age: 48 Year
  Sex: Female

DRUGS (4)
  1. PREDNISOLONE [Suspect]
     Active Substance: PREDNISOLONE
     Indication: Cronkhite-Canada syndrome
     Dosage: 1 MG/KG DAILY;
     Route: 065
  2. PREDNISOLONE [Suspect]
     Active Substance: PREDNISOLONE
     Route: 065
  3. METHYLPREDNISOLONE SODIUM SUCCINATE [Suspect]
     Active Substance: METHYLPREDNISOLONE SODIUM SUCCINATE
     Indication: Cronkhite-Canada syndrome
     Dosage: 1000 MILLIGRAM DAILY;
     Route: 065
  4. INFLIXIMAB [Concomitant]
     Active Substance: INFLIXIMAB
     Indication: Cronkhite-Canada syndrome
     Dosage: ADMINISTERED AT WEEKS 0, 2, AND 6 AND EVERY 8 WEEKS.
     Route: 065

REACTIONS (3)
  - Cronkhite-Canada syndrome [Recovered/Resolved]
  - Rebound effect [Unknown]
  - Drug ineffective [Unknown]
